FAERS Safety Report 11137596 (Version 1)
Quarter: 2015Q2

REPORT INFORMATION
  Report Type: Spontaneous
  Country: DE (occurrence: DE)
  Receive Date: 20150526
  Receipt Date: 20150526
  Transmission Date: 20150821
  Serious: Yes (Death, Hospitalization)
  Sender: FDA-Public Use
  Company Number: PHHY2015DE059738

PATIENT
  Age: 45 Year
  Sex: Male

DRUGS (7)
  1. CARBOPLATIN. [Suspect]
     Active Substance: CARBOPLATIN
     Indication: PRODUCT USED FOR UNKNOWN INDICATION
     Route: 065
  2. EVEROLIMUS [Concomitant]
     Active Substance: EVEROLIMUS
     Indication: CHEMOTHERAPY
     Dosage: 5 MG, QD
     Route: 065
  3. DACARBAZINE. [Suspect]
     Active Substance: DACARBAZINE
     Indication: HYPOGLYCAEMIA
     Route: 065
     Dates: end: 201309
  4. CAPECITABINE. [Suspect]
     Active Substance: CAPECITABINE
     Indication: HYPOGLYCAEMIA
     Route: 065
     Dates: end: 201306
  5. ETOPOSIDE. [Suspect]
     Active Substance: ETOPOSIDE
     Indication: CHEMOTHERAPY
     Route: 065
  6. DACARBAZINE. [Suspect]
     Active Substance: DACARBAZINE
     Indication: SYNCOPE
  7. CAPECITABINE. [Suspect]
     Active Substance: CAPECITABINE
     Indication: SYNCOPE

REACTIONS (8)
  - Renal failure [Fatal]
  - Nausea [Unknown]
  - Hypoglycaemia [Not Recovered/Not Resolved]
  - Syncope [Not Recovered/Not Resolved]
  - Arthralgia [Unknown]
  - Metabolic acidosis [Fatal]
  - Metastases to liver [Unknown]
  - Vomiting [Unknown]

NARRATIVE: CASE EVENT DATE: 201302
